FAERS Safety Report 5872044-4 (Version None)
Quarter: 2008Q3

REPORT INFORMATION
  Report Type: 
  Country: None (occurrence: None)
  Receive Date: 20080905
  Receipt Date: 20080827
  Transmission Date: 20090109
  Serious: Yes (Hospitalization)
  Sender: FDA-Public Use
  Company Number: JP-ABBOTT-08P-087-0460381-00

PATIENT
  Sex: Male

DRUGS (7)
  1. LEUPROLIDE ACETATE [Suspect]
     Indication: PROSTATE CANCER
     Route: 058
     Dates: start: 20080612
  2. MANIDIPINE HYDROCHLORIDE [Concomitant]
     Indication: HYPERTENSION
     Route: 048
  3. ROXATIDINE ACETATE HCL [Concomitant]
     Indication: GASTRIC ULCER
     Route: 048
  4. IRSOGLADINE MALEATE [Concomitant]
     Indication: GASTRIC ULCER
     Route: 048
  5. TIAPRIDE HYDROCHLORIDE [Concomitant]
     Indication: CEREBRAL INFARCTION
     Route: 048
  6. GEMFIBROZIL [Concomitant]
     Indication: HYPERLIPIDAEMIA
     Route: 048
  7. NICERGOLINE [Concomitant]
     Indication: CEREBRAL INFARCTION
     Route: 048

REACTIONS (3)
  - CELLULITIS [None]
  - INJECTION SITE ERYTHEMA [None]
  - INJECTION SITE PAIN [None]
